FAERS Safety Report 14584984 (Version 1)
Quarter: 2018Q1

REPORT INFORMATION
  Report Type: Report from Study
  Country: CA (occurrence: CA)
  Receive Date: 20180301
  Receipt Date: 20180301
  Transmission Date: 20180509
  Serious: Yes (Other)
  Sender: FDA-Public Use
  Company Number: CA-VISTAPHARM, INC.-VER201802-000432

PATIENT
  Age: 11 Year
  Sex: Female

DRUGS (6)
  1. VALPROIC ACID. [Suspect]
     Active Substance: VALPROIC ACID
     Indication: EPILEPSY
  2. TEGRETOL [Concomitant]
     Active Substance: CARBAMAZEPINE
     Indication: RASH
  3. PHENOBARBITAL. [Concomitant]
     Active Substance: PHENOBARBITAL
     Indication: RASH
  4. TEGRETOL [Concomitant]
     Active Substance: CARBAMAZEPINE
     Indication: RETT SYNDROME
  5. VALPROIC ACID. [Suspect]
     Active Substance: VALPROIC ACID
  6. PHENOBARBITAL. [Concomitant]
     Active Substance: PHENOBARBITAL
     Indication: RETT SYNDROME

REACTIONS (3)
  - Pleural effusion [Recovered/Resolved]
  - Pancreatitis [Recovered/Resolved]
  - Pneumonia [Recovered/Resolved]
